FAERS Safety Report 15309826 (Version 1)
Quarter: 2018Q3

REPORT INFORMATION
  Report Type: Spontaneous
  Country: US (occurrence: US)
  Receive Date: 20180812
  Receipt Date: 20180812
  Transmission Date: 20181010
  Serious: No
  Sender: FDA-Public Use
  Company Number: None

PATIENT
  Age: 29 Month
  Sex: Male
  Weight: 13.5 kg

DRUGS (1)
  1. UP AND UP POWDERLAX [Suspect]
     Active Substance: POLYETHYLENE GLYCOL 3350
     Indication: CONSTIPATION
     Dosage: DAILY; PUT IN BOTTLE OF ALMOND MILK?

REACTIONS (3)
  - Abnormal behaviour [None]
  - Irritability [None]
  - Exaggerated startle response [None]

NARRATIVE: CASE EVENT DATE: 20180812
